FAERS Safety Report 20430357 (Version 1)
Quarter: 2022Q1

REPORT INFORMATION
  Report Type: Report from Study
  Country: FR (occurrence: FR)
  Receive Date: 20220204
  Receipt Date: 20220204
  Transmission Date: 20220423
  Serious: Yes (Hospitalization)
  Sender: FDA-Public Use
  Company Number: FR-SERVIER-S20006086

PATIENT

DRUGS (9)
  1. PEGASPARGASE [Suspect]
     Active Substance: PEGASPARGASE
     Indication: Acute lymphocytic leukaemia
     Dosage: 3000 IU
     Route: 042
     Dates: start: 20190830, end: 20200407
  2. TN UNSPECIFIED [Concomitant]
     Indication: Acute lymphocytic leukaemia
     Dosage: 90 MG, UNKNOWN
     Route: 042
     Dates: start: 20190930
  3. TN UNSPECIFIED [Concomitant]
     Dosage: 30 MG, UNKNOWN
     Route: 037
     Dates: start: 20191002
  4. TN UNSPECIFIED [Concomitant]
     Indication: Acute lymphocytic leukaemia
     Dosage: 1200 MG, UNKNOWN
     Route: 042
     Dates: start: 20191112
  5. TN UNSPECIFIED [Concomitant]
     Indication: Acute lymphocytic leukaemia
     Dosage: 1.7 MG, UNKNOWN
     Route: 042
     Dates: start: 20190826
  6. TN UNSPECIFIED [Concomitant]
     Indication: Acute lymphocytic leukaemia
     Dosage: 30 MG, UNKNOWN
     Route: 042
     Dates: start: 20200225
  7. TN UNSPECIFIED [Concomitant]
     Indication: Acute lymphocytic leukaemia
     Dosage: 12 MG, UNKNOWN
     Route: 048
     Dates: start: 20190826
  8. TN UNSPECIFIED [Concomitant]
     Indication: Acute lymphocytic leukaemia
     Dosage: 12 MG, UNKNOWN
     Route: 037
     Dates: start: 20190830
  9. TN UNSPECIFIED [Concomitant]
     Indication: Acute lymphocytic leukaemia
     Dosage: 15 MG, UNKNOWN
     Route: 037
     Dates: start: 20191002

REACTIONS (1)
  - Bronchopulmonary aspergillosis [Recovered/Resolved]

NARRATIVE: CASE EVENT DATE: 20200423
